FAERS Safety Report 18991230 (Version 1)
Quarter: 2021Q1

REPORT INFORMATION
  Report Type: Spontaneous
  Country: US (occurrence: US)
  Receive Date: 20210310
  Receipt Date: 20210310
  Transmission Date: 20210420
  Serious: Yes (Hospitalization, Other)
  Sender: FDA-Public Use
  Company Number: US-AMGEN-USASP2021034460

PATIENT
  Age: 64 Year
  Sex: Female
  Weight: 71.2 kg

DRUGS (1)
  1. NEULASTA [Suspect]
     Active Substance: PEGFILGRASTIM
     Indication: NEUTROPENIA
     Dosage: UNK, QMO (EVERY MONTH AT LEAST ONE TIME)
     Route: 065

REACTIONS (5)
  - Neutropenia [Not Recovered/Not Resolved]
  - White blood cell count decreased [Not Recovered/Not Resolved]
  - White blood cell count increased [Recovered/Resolved]
  - Red blood cell count decreased [Not Recovered/Not Resolved]
  - Eyelid disorder [Unknown]

NARRATIVE: CASE EVENT DATE: 202102
